FAERS Safety Report 18322318 (Version 3)
Quarter: 2020Q4

REPORT INFORMATION
  Report Type: Spontaneous
  Country: CN (occurrence: CN)
  Receive Date: 20200929
  Receipt Date: 20201026
  Transmission Date: 20210113
  Serious: Yes (Hospitalization)
  Sender: FDA-Public Use
  Company Number: CN-ASTRAZENECA-2020SF20391

PATIENT
  Age: 43 Year
  Sex: Male

DRUGS (2)
  1. FORXIGA [Suspect]
     Active Substance: DAPAGLIFLOZIN
     Indication: TYPE 1 DIABETES MELLITUS
     Route: 048
     Dates: start: 20200914, end: 20200914
  2. ASPART 30 [Concomitant]
     Dosage: 17 UNITS IN THE MORNING AND 17 UNITS IN THE EVENING

REACTIONS (18)
  - Type 2 diabetes mellitus [Unknown]
  - Diabetes mellitus inadequate control [Recovering/Resolving]
  - Upper respiratory tract infection [Unknown]
  - Epigastric discomfort [Unknown]
  - Fatigue [Unknown]
  - Hyperuricaemia [Unknown]
  - Intentional product misuse [Unknown]
  - Gastrointestinal infection [Recovering/Resolving]
  - Thirst [Recovering/Resolving]
  - Vomiting [Recovering/Resolving]
  - Diabetic ketoacidosis [Unknown]
  - Gastrointestinal inflammation [Recovering/Resolving]
  - Asthenia [Unknown]
  - Electrolyte imbalance [Unknown]
  - Chest discomfort [Recovering/Resolving]
  - Dizziness [Recovering/Resolving]
  - Discomfort [Recovering/Resolving]
  - Dry mouth [Unknown]

NARRATIVE: CASE EVENT DATE: 20200914
